FAERS Safety Report 6257243-4 (Version None)
Quarter: 2009Q3

REPORT INFORMATION
  Report Type: 
  Country: None (occurrence: None)
  Receive Date: 20090706
  Receipt Date: 20090626
  Transmission Date: 20100115
  Serious: Yes (Disabling)
  Sender: FDA-Public Use
  Company Number: IT-PFIZER INC-2009233913

PATIENT
  Age: 80 Year

DRUGS (2)
  1. TORVAST [Suspect]
     Dosage: 40 MG, 1X/DAY
     Route: 048
     Dates: start: 20080101, end: 20081130
  2. SINVACOR [Concomitant]
     Indication: HYPERCHOLESTEROLAEMIA
     Dosage: 20 MG, UNK
     Route: 048

REACTIONS (3)
  - DYSARTHRIA [None]
  - DYSPHAGIA [None]
  - MOTOR NEURONE DISEASE [None]
